FAERS Safety Report 5338527-0 (Version None)
Quarter: 2007Q2

REPORT INFORMATION
  Report Type: 
  Country: None (occurrence: None)
  Receive Date: 20070322
  Receipt Date: 20060213
  Transmission Date: 20071010
  Serious: Yes (Other)
  Sender: FDA-Public Use
  Company Number: 200610034BCC

PATIENT
  Age: 52 Year
  Sex: Female
  Weight: 61.6892 kg

DRUGS (2)
  1. ALEVE [Suspect]
     Dosage: SEE IMAGE
     Route: 048
     Dates: start: 20040101
  2. PREFEST [Concomitant]

REACTIONS (2)
  - ABDOMINAL PAIN UPPER [None]
  - GASTRITIS EROSIVE [None]
